APPROVED DRUG PRODUCT: PHOSPHOLINE IODIDE
Active Ingredient: ECHOTHIOPHATE IODIDE
Strength: 0.03%
Dosage Form/Route: FOR SOLUTION;OPHTHALMIC
Application: N011963 | Product #002
Applicant: FERA PHARMACEUTICALS LLC
Approved: Approved Prior to Jan 1, 1982 | RLD: No | RS: No | Type: DISCN